FAERS Safety Report 4322273-6 (Version None)
Quarter: 2004Q1

REPORT INFORMATION
  Report Type: 
  Country: None (occurrence: None)
  Receive Date: 20040319
  Receipt Date: 20040309
  Transmission Date: 20041129
  Serious: Yes (Hospitalization)
  Sender: FDA-Public Use
  Company Number: 163-20785-03100278(1)

PATIENT
  Age: 65 Year
  Sex: Male

DRUGS (3)
  1. THALOMID [Suspect]
     Indication: WALDENSTROM'S MACROGLOBULINAEMIA
     Dosage: 400 MG, QD, ORAL
     Route: 048
     Dates: start: 20021201, end: 20031001
  2. THORAZINE [Concomitant]
  3. MEGACE [Concomitant]

REACTIONS (1)
  - BONE MARROW NECROSIS [None]
